FAERS Safety Report 20503506 (Version 1)
Quarter: 2022Q1

REPORT INFORMATION
  Report Type: Spontaneous
  Country: US (occurrence: US)
  Receive Date: 20220222
  Receipt Date: 20220222
  Transmission Date: 20220424
  Serious: No
  Sender: FDA-Public Use
  Company Number: US-BRISTOL-MYERS SQUIBB COMPANY-BMS-2022-022058

PATIENT
  Age: 34 Year
  Sex: Female
  Weight: 54.422 kg

DRUGS (2)
  1. KENALOG-40 [Suspect]
     Active Substance: TRIAMCINOLONE ACETONIDE
     Indication: Product used for unknown indication
     Dosage: UNK
     Route: 065
     Dates: start: 202105, end: 202105
  2. SPIRONOLACTONE [Concomitant]
     Active Substance: SPIRONOLACTONE
     Indication: Product used for unknown indication
     Dosage: UNK
     Route: 065

REACTIONS (12)
  - Bone loss [Unknown]
  - Hypertension [Unknown]
  - Mood altered [Unknown]
  - Insulin resistance [Unknown]
  - Contusion [Unknown]
  - Tremor [Unknown]
  - Insomnia [Unknown]
  - Alopecia [Unknown]
  - Acne [Unknown]
  - Menstrual disorder [Unknown]
  - Palpitations [Unknown]
  - Burning sensation [Unknown]
